FAERS Safety Report 18267322 (Version 1)
Quarter: 2020Q3

REPORT INFORMATION
  Report Type: Spontaneous
  Country: RO (occurrence: RO)
  Receive Date: 20200915
  Receipt Date: 20200915
  Transmission Date: 20201103
  Serious: Yes (Hospitalization)
  Sender: FDA-Public Use
  Company Number: RO-AMNEAL PHARMACEUTICALS-2020-AMRX-02804

PATIENT
  Age: 72 Year
  Sex: Female

DRUGS (1)
  1. ACYCLOVIR. [Suspect]
     Active Substance: ACYCLOVIR
     Indication: HERPES ZOSTER
     Dosage: 800 MILLIGRAM, 5X/DAY
     Route: 048

REACTIONS (1)
  - Immune thrombocytopenia [Recovered/Resolved]
